FAERS Safety Report 18735767 (Version 1)
Quarter: 2021Q1

REPORT INFORMATION
  Report Type: Spontaneous
  Country: CN (occurrence: CN)
  Receive Date: 20210113
  Receipt Date: 20210113
  Transmission Date: 20210419
  Serious: Yes (Other)
  Sender: FDA-Public Use
  Company Number: CN-PFIZER INC-2021015457

PATIENT
  Age: 76 Year
  Sex: Male
  Weight: 60 kg

DRUGS (2)
  1. CEFOBID [Suspect]
     Active Substance: CEFOPERAZONE
     Indication: ANTI-INFECTIVE THERAPY
     Dosage: 2.000000 G, 2X/DAY
     Route: 041
     Dates: start: 20201229, end: 20210102
  2. CEFOBID [Suspect]
     Active Substance: CEFOPERAZONE
     Indication: PNEUMONIA

REACTIONS (2)
  - Rash erythematous [Recovering/Resolving]
  - Rash pruritic [Recovering/Resolving]

NARRATIVE: CASE EVENT DATE: 20210102
